FAERS Safety Report 7025270-5 (Version None)
Quarter: 2010Q4

REPORT INFORMATION
  Report Type: 
  Country: None (occurrence: None)
  Receive Date: 20101001
  Receipt Date: 20100924
  Transmission Date: 20110411
  Serious: Yes (Hospitalization, Other)
  Sender: FDA-Public Use
  Company Number: JP-ABBOTT-10P-087-0666765-00

PATIENT
  Sex: Male
  Weight: 70 kg

DRUGS (4)
  1. KLARICID TABLETS [Suspect]
     Indication: HELICOBACTER INFECTION
     Route: 048
     Dates: start: 20090703, end: 20090705
  2. AMOXICILLIN TRIHYDRATE [Suspect]
     Indication: HELICOBACTER INFECTION
     Route: 048
     Dates: start: 20090703, end: 20090705
  3. PARIET [Concomitant]
     Indication: HELICOBACTER INFECTION
     Route: 048
     Dates: start: 20090703, end: 20090705
  4. MIYA BM [Concomitant]
     Indication: DIARRHOEA
     Route: 048
     Dates: start: 20090703, end: 20090705

REACTIONS (3)
  - DYSPNOEA [None]
  - ERYTHEMA [None]
  - ERYTHEMA MULTIFORME [None]
